FAERS Safety Report 12677269 (Version 1)
Quarter: 2016Q3

REPORT INFORMATION
  Report Type: Report from Study
  Country: DE (occurrence: DE)
  Receive Date: 20160823
  Receipt Date: 20160823
  Transmission Date: 20161109
  Serious: Yes (Death)
  Sender: FDA-Public Use
  Company Number: DE-JNJFOC-20160818334

PATIENT

DRUGS (7)
  1. VINDESINE [Suspect]
     Active Substance: VINDESINE
     Indication: GANGLIONEUROBLASTOMA
     Route: 065
  2. DACARBAZINE. [Suspect]
     Active Substance: DACARBAZINE
     Indication: GANGLIONEUROBLASTOMA
     Route: 065
  3. IFOSFAMIDE. [Suspect]
     Active Substance: IFOSFAMIDE
     Indication: GANGLIONEUROBLASTOMA
     Route: 065
  4. CISPLATIN. [Suspect]
     Active Substance: CISPLATIN
     Indication: GANGLIONEUROBLASTOMA
     Route: 065
  5. VINCRISTINE [Suspect]
     Active Substance: VINCRISTINE
     Indication: GANGLIONEUROBLASTOMA
     Route: 065
  6. DOXORUBICIN HYDROCHLORIDE. [Suspect]
     Active Substance: DOXORUBICIN HYDROCHLORIDE
     Indication: GANGLIONEUROBLASTOMA
     Route: 065
  7. ETOPOSIDE. [Suspect]
     Active Substance: ETOPOSIDE
     Indication: GANGLIONEUROBLASTOMA
     Route: 065

REACTIONS (4)
  - Product use issue [Unknown]
  - Cardiac failure [Fatal]
  - Off label use [Unknown]
  - Pulmonary oedema [Fatal]
